FAERS Safety Report 5233468-1 (Version None)
Quarter: 2007Q1

REPORT INFORMATION
  Report Type: 
  Country: None (occurrence: None)
  Receive Date: 20061208
  Receipt Date: 20060330
  Transmission Date: 20070707
  Serious: Yes (Other)
  Sender: FDA-Public Use
  Company Number: 2006UW03925

PATIENT
  Age: 62 Year
  Sex: Female
  Weight: 72.574 kg

DRUGS (6)
  1. CRESTOR [Suspect]
     Indication: BLOOD CHOLESTEROL INCREASED
  2. FOSAMAX [Concomitant]
  3. CATAPRES /USA/ [Concomitant]
  4. VITAMIN CAP [Concomitant]
  5. ASPIRIN [Concomitant]
  6. CALCIUM SUPPLEMENTS [Concomitant]

REACTIONS (7)
  - ABDOMINAL DISTENSION [None]
  - CONSTIPATION [None]
  - DRY MOUTH [None]
  - EPISTAXIS [None]
  - FLATULENCE [None]
  - NASAL DRYNESS [None]
  - SWOLLEN TONGUE [None]
